FAERS Safety Report 24545140 (Version 1)
Quarter: 2024Q4

REPORT INFORMATION
  Report Type: Spontaneous
  Country: GR (occurrence: GR)
  Receive Date: 20241024
  Receipt Date: 20241024
  Transmission Date: 20250114
  Serious: Yes (Death, Hospitalization, Other)
  Sender: SANDOZ
  Company Number: GR-002147023-NVSC2019GR040058

PATIENT
  Age: 79 Year
  Sex: Female

DRUGS (10)
  1. ERYTHROPOIETIN [Suspect]
     Active Substance: ERYTHROPOIETIN
     Indication: Systemic mastocytosis
     Dosage: UNK UNK, QW
     Route: 065
     Dates: start: 2019
  2. ERYTHROPOIETIN [Suspect]
     Active Substance: ERYTHROPOIETIN
     Indication: Myelodysplastic syndrome
     Dosage: UNK
     Route: 065
  3. FILGRASTIM [Suspect]
     Active Substance: FILGRASTIM
     Indication: Systemic mastocytosis
     Dosage: UNK
     Route: 065
  4. FILGRASTIM [Suspect]
     Active Substance: FILGRASTIM
     Indication: Myelodysplastic syndrome
     Dosage: UNK UNK, QWK
     Route: 065
     Dates: start: 2019
  5. INTERFERON ALFA-2B [Suspect]
     Active Substance: INTERFERON ALFA-2B
     Indication: Myelodysplastic syndrome
     Dosage: UNK
     Route: 065
  6. INTERFERON ALFA-2B [Suspect]
     Active Substance: INTERFERON ALFA-2B
     Indication: Systemic mastocytosis
     Dosage: UNK
     Route: 065
     Dates: start: 2019
  7. METHYLPREDNISOLONE [Suspect]
     Active Substance: METHYLPREDNISOLONE
     Indication: Myelodysplastic syndrome
     Dosage: UNK
     Route: 065
  8. METHYLPREDNISOLONE [Suspect]
     Active Substance: METHYLPREDNISOLONE
     Indication: Systemic mastocytosis
     Dosage: UNK
     Route: 065
     Dates: start: 2019
  9. OMEPRAZOLE [Suspect]
     Active Substance: OMEPRAZOLE
     Indication: Myelodysplastic syndrome
     Dosage: UNK
     Route: 065
  10. OMEPRAZOLE [Suspect]
     Active Substance: OMEPRAZOLE
     Indication: Systemic mastocytosis
     Dosage: UNK
     Route: 065
     Dates: start: 2019

REACTIONS (10)
  - Respiratory tract infection [Fatal]
  - Septic shock [Fatal]
  - Haemorrhage [Fatal]
  - Thrombocytopenia [Fatal]
  - Pulmonary haemorrhage [Fatal]
  - Acute respiratory failure [Unknown]
  - Neutropenia [Unknown]
  - Off label use [Unknown]
  - Condition aggravated [Unknown]
  - Therapy partial responder [Unknown]

NARRATIVE: CASE EVENT DATE: 20190101
